FAERS Safety Report 16691947 (Version 1)
Quarter: 2019Q3

REPORT INFORMATION
  Report Type: Spontaneous
  Country: US (occurrence: US)
  Receive Date: 20190625
  Receipt Date: 20190625
  Transmission Date: 20191004
  Serious: No
  Sender: FDA-Public Use
  Company Number: None

PATIENT
  Age: 71 Year
  Sex: Male

DRUGS (7)
  1. ERLEADA [Suspect]
     Active Substance: APALUTAMIDE
     Indication: PROSTATE CANCER
     Route: 048
  2. ALPRAZOLAM. [Concomitant]
     Active Substance: ALPRAZOLAM
  3. TIMOLOL. [Concomitant]
     Active Substance: TIMOLOL
  4. PREDNISONE. [Concomitant]
     Active Substance: PREDNISONE
  5. FIRMAGON [Concomitant]
     Active Substance: DEGARELIX ACETATE
  6. GABAPENTIN. [Concomitant]
     Active Substance: GABAPENTIN
  7. IBUPROFEN. [Concomitant]
     Active Substance: IBUPROFEN

REACTIONS (11)
  - Nausea [None]
  - Abdominal pain upper [None]
  - Dizziness [None]
  - Balance disorder [None]
  - Muscle atrophy [None]
  - Fatigue [None]
  - Cough [None]
  - Hot flush [None]
  - Decreased appetite [None]
  - Hyperhidrosis [None]
  - Flatulence [None]
